FAERS Safety Report 4577419-1 (Version None)
Quarter: 2005Q1

REPORT INFORMATION
  Report Type: 
  Country: None (occurrence: None)
  Receive Date: 20050208
  Receipt Date: 20050131
  Transmission Date: 20050727
  Serious: Yes (Death, Hospitalization)
  Sender: FDA-Public Use
  Company Number: HQ0306825AUG2000

PATIENT
  Age: 67 Year
  Sex: Female

DRUGS (7)
  1. ENBREL [Suspect]
     Indication: RHEUMATOID ARTHRITIS
     Dosage: 25 MG 2 X PER 1 WK, SC
     Route: 058
     Dates: start: 19991011, end: 20000401
  2. ORUVAIL [Suspect]
     Indication: RHEUMATOID ARTHRITIS
     Dosage: 200 MG 1 X PER 1 DAY, ORAL
     Route: 048
  3. PREDNISONE [Concomitant]
  4. CYANOCOBALAMIN (CYANOCOBALAMIN) [Concomitant]
  5. ETIDRONATE DISODIUM [Concomitant]
  6. LANSOPRAZOLE [Concomitant]
  7. CISAPRIDE (CISAPRIDE) [Concomitant]

REACTIONS (7)
  - ASPIRATION [None]
  - CARDIOMEGALY [None]
  - GASTROENTERITIS [None]
  - PULMONARY CONGESTION [None]
  - PULSE ABSENT [None]
  - RENAL FAILURE [None]
  - SHOCK [None]
